FAERS Safety Report 5643936-6 (Version None)
Quarter: 2008Q1

REPORT INFORMATION
  Report Type: 
  Country: None (occurrence: None)
  Receive Date: 20080226
  Receipt Date: 20080221
  Transmission Date: 20080703
  Serious: Yes (Other)
  Sender: FDA-Public Use
  Company Number: A0711309A

PATIENT
  Age: 76 Year
  Sex: Male

DRUGS (1)
  1. METHYLCELLULOSE (FORMULATION UNKNOWN) REGULAR (METHYLCELLULOSE) [Suspect]

REACTIONS (1)
  - INTESTINAL OBSTRUCTION [None]
